FAERS Safety Report 20913036 (Version 1)
Quarter: 2022Q2

REPORT INFORMATION
  Report Type: Spontaneous
  Country: US (occurrence: US)
  Receive Date: 20220603
  Receipt Date: 20220603
  Transmission Date: 20220721
  Serious: No
  Sender: FDA-Public Use
  Company Number: US-009507513-2206USA000359

PATIENT
  Age: 76 Year
  Sex: Female

DRUGS (2)
  1. PRINIVIL [Suspect]
     Active Substance: LISINOPRIL
     Route: 048
  2. LOSARTAN POTASSIUM [Suspect]
     Active Substance: LOSARTAN POTASSIUM
     Route: 048

REACTIONS (1)
  - Drug ineffective [Unknown]
